FAERS Safety Report 9893797 (Version 1)
Quarter: 2014Q1

REPORT INFORMATION
  Report Type: Report from Study
  Country: DK (occurrence: DE)
  Receive Date: 20140213
  Receipt Date: 20140213
  Transmission Date: 20141002
  Serious: Yes (Hospitalization)
  Sender: FDA-Public Use
  Company Number: DE-FRI-1000054119

PATIENT
  Sex: Male

DRUGS (8)
  1. CITALOPRAM [Suspect]
     Dosage: 20 MG
     Route: 048
     Dates: start: 20011110, end: 20011113
  2. REMERGIL [Suspect]
     Dosage: 30 MG
     Route: 048
     Dates: start: 20010907, end: 20010920
  3. REMERGIL [Suspect]
     Dosage: 45 MG
     Route: 048
     Dates: start: 20010921, end: 20011010
  4. REMERGIL [Suspect]
     Dosage: 60 MG
     Route: 048
     Dates: start: 20011011
  5. CONCOR [Suspect]
     Dosage: 2.5 MG
     Route: 048
  6. ANTRA [Concomitant]
     Dosage: 10 MG
     Route: 048
  7. ACTRAPID [Concomitant]
     Dosage: ACCORDING TO BLOOD PRESSURE
  8. PROTAPHANE [Concomitant]
     Dosage: ACCORDING TO BLOOD PRESSURE

REACTIONS (4)
  - Syncope [Recovered/Resolved]
  - Cyanosis [Recovered/Resolved]
  - Nausea [Recovered/Resolved]
  - Dizziness [Recovered/Resolved]
